FAERS Safety Report 8692364 (Version 5)
Quarter: 2013Q1

REPORT INFORMATION
  Report Type: Spontaneous
  Country: US (occurrence: US)
  Receive Date: 20120730
  Receipt Date: 20130301
  Transmission Date: 20140127
  Serious: Yes (Other)
  Sender: FDA-Public Use
  Company Number: US-PFIZER INC-2012178324

PATIENT
  Age: 56 Year
  Sex: Female
  Weight: 83.9 kg

DRUGS (5)
  1. DILANTIN-125 [Suspect]
     Indication: CONVULSION
     Dosage: UNK, 3X/DAY
     Route: 048
  2. DILANTIN-125 [Suspect]
     Dosage: 300 MG, UNK
     Route: 048
     Dates: start: 20120213
  3. PHENYTOIN SODIUM [Suspect]
     Indication: CONVULSION
     Dosage: 300 MG, 1X/DAY
     Dates: start: 201103
  4. PHENYTOIN SODIUM [Suspect]
     Dosage: 100 MG, 3X/DAY
     Dates: start: 201302
  5. NEURONTIN [Suspect]
     Dosage: 800 MG, 1X/DAY
     Route: 048

REACTIONS (16)
  - Impaired work ability [Unknown]
  - Blood iron decreased [Unknown]
  - Blood potassium decreased [Unknown]
  - Renal disorder [Unknown]
  - Stomatitis [Recovered/Resolved]
  - Urticaria [Unknown]
  - Drug hypersensitivity [Unknown]
  - Joint swelling [Unknown]
  - Rash [Unknown]
  - Gingival swelling [Recovered/Resolved]
  - Scab [Unknown]
  - Skin lesion [Unknown]
  - Somnolence [Unknown]
  - Blister [Unknown]
  - Oropharyngeal pain [Unknown]
  - Dry skin [Unknown]
